FAERS Safety Report 18995293 (Version 1)
Quarter: 2021Q1

REPORT INFORMATION
  Report Type: Report from Study
  Country: None (occurrence: US)
  Receive Date: 20210310
  Receipt Date: 20210310
  Transmission Date: 20210420
  Serious: Yes (Hospitalization)
  Sender: FDA-Public Use
  Company Number: US-ABBVIE-21K-163-3804156-00

PATIENT
  Sex: Female

DRUGS (3)
  1. CREON [Concomitant]
     Active Substance: PANCRELIPASE AMYLASE\PANCRELIPASE LIPASE\PANCRELIPASE PROTEASE
     Indication: PRODUCT USED FOR UNKNOWN INDICATION
  2. HUMIRA [Suspect]
     Active Substance: ADALIMUMAB
     Indication: RHEUMATOID ARTHRITIS
     Route: 058
     Dates: start: 20210203, end: 20210303
  3. HUMIRA [Suspect]
     Active Substance: ADALIMUMAB
     Indication: CROHN^S DISEASE
     Route: 058
     Dates: end: 202010

REACTIONS (8)
  - Illness [Unknown]
  - Depressed mood [Unknown]
  - Rheumatoid arthritis [Not Recovered/Not Resolved]
  - Fear [Unknown]
  - Diabetic nephropathy [Recovering/Resolving]
  - Insomnia [Unknown]
  - Anxiety [Unknown]
  - Crohn^s disease [Not Recovered/Not Resolved]
